FAERS Safety Report 7075398-9 (Version None)
Quarter: 2010Q4

REPORT INFORMATION
  Report Type: 
  Country: None (occurrence: None)
  Receive Date: 20101030
  Receipt Date: 20100920
  Transmission Date: 20110411
  Serious: No
  Sender: FDA-Public Use
  Company Number: US-WYE-H17605410

PATIENT
  Sex: Female
  Weight: 83.99 kg

DRUGS (8)
  1. PRISTIQ [Suspect]
     Indication: DEPRESSION
     Dates: start: 20100908
  2. LORAZEPAM [Concomitant]
  3. VITAMIN B-12 [Concomitant]
  4. PERCOCET [Concomitant]
  5. HYDROCHLOROTHIAZIDE [Concomitant]
  6. MULTI-VITAMINS [Concomitant]
  7. BUSPAR [Concomitant]
  8. ZOLOFT [Suspect]

REACTIONS (3)
  - ANXIETY [None]
  - NERVOUSNESS [None]
  - WRONG TECHNIQUE IN DRUG USAGE PROCESS [None]
